FAERS Safety Report 9271030 (Version 1)
Quarter: 2013Q2

REPORT INFORMATION
  Report Type: Spontaneous
  Country: US (occurrence: US)
  Receive Date: 20130506
  Receipt Date: 20130506
  Transmission Date: 20140414
  Serious: Yes (Hospitalization)
  Sender: FDA-Public Use
  Company Number: US-JNJFOC-20130413264

PATIENT
  Age: 63 Year
  Sex: Male

DRUGS (10)
  1. INVEGA SUSTENNA [Suspect]
     Indication: SCHIZOPHRENIA
     Route: 030
     Dates: start: 201211
  2. AMLODIPINE [Concomitant]
     Route: 065
  3. BENZTROPINE [Concomitant]
     Route: 065
  4. HYDROCHLOROTHIAZIDE [Concomitant]
     Route: 065
  5. OMEPRAZOLE [Concomitant]
     Route: 048
  6. FOLIC ACID [Concomitant]
     Route: 065
  7. VITAMIN B12 [Concomitant]
     Route: 065
  8. THIAMIN [Concomitant]
     Route: 065
  9. SUCRALFATE [Concomitant]
     Route: 065
  10. GEMFIBROZIL [Concomitant]
     Route: 048

REACTIONS (1)
  - Psychotic disorder [Unknown]
